FAERS Safety Report 18203747 (Version 1)
Quarter: 2020Q3

REPORT INFORMATION
  Report Type: Spontaneous
  Country: FR (occurrence: FR)
  Receive Date: 20200827
  Receipt Date: 20200827
  Transmission Date: 20201103
  Serious: Yes (Hospitalization)
  Sender: FDA-Public Use
  Company Number: FR-MYLANLABS-2020M1073319

PATIENT
  Age: 60 Year
  Sex: Female

DRUGS (2)
  1. CLAMOXYL                           /00249602/ [Suspect]
     Active Substance: AMOXICILLIN
     Indication: URINARY TRACT INFECTION
     Dosage: 3 GRAM, QD
     Route: 048
     Dates: start: 20200717, end: 20200720
  2. PARACETAMOL [Suspect]
     Active Substance: ACETAMINOPHEN
     Indication: PAIN
     Dosage: 1 GIGABECQUEREL, PRN (4 G MAXIMUM PAR JOUR)
     Route: 048
     Dates: start: 202007, end: 20200721

REACTIONS (2)
  - Thrombocytopenia [Recovered/Resolved]
  - Hepatitis [Recovering/Resolving]

NARRATIVE: CASE EVENT DATE: 20200721
